FAERS Safety Report 5274441-7 (Version None)
Quarter: 2007Q1

REPORT INFORMATION
  Report Type: 
  Country: None (occurrence: None)
  Receive Date: 20070320
  Receipt Date: 20070314
  Transmission Date: 20070707
  Serious: Yes (Hospitalization)
  Sender: FDA-Public Use
  Company Number: 237794

PATIENT
  Age: 53 Year
  Sex: Male

DRUGS (8)
  1. AVASTIN [Suspect]
     Indication: HEPATIC NEOPLASM MALIGNANT
     Dosage: 10 MG/KG, Q2W, INTRAVENOUS
     Route: 042
     Dates: start: 20061115
  2. ERLOTINIB(ERLOTINIB) TABLET [Suspect]
     Indication: HEPATIC NEOPLASM MALIGNANT
     Dosage: 150 MG/KG, QD, ORAL
     Route: 048
     Dates: start: 20061116
  3. MORPHINE [Concomitant]
  4. HYDROCHLOROTHIAZIDE [Concomitant]
  5. PROPRANOLOL (PROPRANOLOL HYDROCHLORIDE) [Concomitant]
  6. EPIVIR [Concomitant]
  7. KEFLEX [Concomitant]
  8. BACTROBAN [Concomitant]

REACTIONS (6)
  - ASCITES [None]
  - DIARRHOEA [None]
  - INFECTION [None]
  - NECROSIS [None]
  - PERIANAL ABSCESS [None]
  - PYREXIA [None]
